FAERS Safety Report 21171529 (Version 6)
Quarter: 2022Q4

REPORT INFORMATION
  Report Type: Spontaneous
  Country: JP (occurrence: JP)
  Receive Date: 20220804
  Receipt Date: 20221130
  Transmission Date: 20230112
  Serious: Yes (Other)
  Sender: FDA-Public Use
  Company Number: JP-ASTELLAS-2022JP009331

PATIENT
  Age: 6 Decade
  Sex: Male

DRUGS (2)
  1. PADCEV [Suspect]
     Active Substance: ENFORTUMAB VEDOTIN-EJFV
     Indication: Transitional cell carcinoma
     Dosage: 1.25 MG/KG, ONCE WEEKLY, 3 ADMINISTRATION AND 1 WITHDRAWAL
     Route: 041
     Dates: start: 20220513
  2. PADCEV [Suspect]
     Active Substance: ENFORTUMAB VEDOTIN-EJFV
     Dosage: 1.25 MG/KG, ONCE WEEKLY, 3 ADMINISTRATION AND 1 WITHDRAWAL
     Route: 041
     Dates: start: 20220708

REACTIONS (4)
  - Blister [Recovering/Resolving]
  - Alopecia [Recovering/Resolving]
  - Dysgeusia [Recovering/Resolving]
  - Cholangitis [Recovered/Resolved]

NARRATIVE: CASE EVENT DATE: 20220520
